FAERS Safety Report 5905053-7 (Version None)
Quarter: 2008Q4

REPORT INFORMATION
  Report Type: 
  Country: None (occurrence: None)
  Receive Date: 20081001
  Receipt Date: 20080923
  Transmission Date: 20090506
  Serious: Yes (Hospitalization, Other)
  Sender: FDA-Public Use
  Company Number: US-AMGEN-US300429

PATIENT
  Age: 42 Year
  Sex: Female
  Weight: 75.6 kg

DRUGS (11)
  1. NEULASTA [Suspect]
     Indication: CHEMOTHERAPY
     Route: 058
     Dates: start: 20080503, end: 20080711
  2. CARBOPLATIN [Suspect]
     Indication: CHEMOTHERAPY
     Route: 042
     Dates: start: 20080502, end: 20080627
  3. PACLITAXEL [Suspect]
     Indication: CHEMOTHERAPY
     Route: 042
     Dates: start: 20080502, end: 20080627
  4. HYDROMORPHONE HCL [Concomitant]
     Route: 048
  5. LORAZEPAM [Concomitant]
  6. METOCLOPRAMIDE [Concomitant]
  7. NYSTATIN [Concomitant]
  8. RIZATRIPTAN BENZOATE [Concomitant]
     Route: 048
  9. SENNOSIDE [Concomitant]
     Route: 048
  10. SIMETHICONE [Concomitant]
     Route: 048
  11. ZOLPIDEM [Concomitant]
     Route: 048

REACTIONS (17)
  - ARRHYTHMIA SUPRAVENTRICULAR [None]
  - DEHYDRATION [None]
  - FATIGUE [None]
  - GASTROINTESTINAL HAEMORRHAGE [None]
  - HAEMOGLOBIN [None]
  - HYPERBILIRUBINAEMIA [None]
  - HYPOKALAEMIA [None]
  - HYPONATRAEMIA [None]
  - HYPOPHOSPHATAEMIA [None]
  - INFECTION [None]
  - NAUSEA [None]
  - NEUTROPHIL COUNT ABNORMAL [None]
  - PLATELET COUNT ABNORMAL [None]
  - SPEECH DISORDER [None]
  - SYNCOPE [None]
  - VOMITING [None]
  - WEIGHT DECREASED [None]
